FAERS Safety Report 9349790 (Version 1)
Quarter: 2013Q2

REPORT INFORMATION
  Report Type: Spontaneous
  Country: US (occurrence: US)
  Receive Date: 20130614
  Receipt Date: 20130614
  Transmission Date: 20140414
  Serious: Yes (Disabling)
  Sender: FDA-Public Use
  Company Number: US-009507513-1306USA005166

PATIENT
  Age: 76 Year
  Sex: Female

DRUGS (10)
  1. SINEMET [Suspect]
     Route: 048
  2. AZILECT [Suspect]
     Indication: PARKINSON^S DISEASE
     Dosage: 0.5 MG, UNK
     Route: 048
     Dates: start: 2007
  3. CARBIDOPA (+) LEVODOPA [Concomitant]
  4. LISINOPRIL [Concomitant]
     Indication: BLOOD PRESSURE
     Dosage: 20 MG, AM AND PM
  5. DILTIAZEM HYDROCHLORIDE [Concomitant]
     Dosage: 180 MG, IN PM
  6. LEXAPRO [Concomitant]
     Dosage: 20 MG, EVENING
  7. FAMOTIDINE [Concomitant]
     Dosage: 20 MG, 1 IN 1 D
  8. FOLIC ACID [Concomitant]
     Dosage: 20 MG, 1 IN ONE D
  9. VITAMINS (UNSPECIFIED) [Concomitant]
     Dosage: 20 MG, 1 IN 1 D
  10. UBIDECARENONE [Concomitant]

REACTIONS (5)
  - Gait disturbance [Recovered/Resolved]
  - Speech disorder [Recovered/Resolved]
  - Musculoskeletal stiffness [Unknown]
  - Confusional state [Recovered/Resolved]
  - Therapeutic response decreased [Unknown]
